FAERS Safety Report 10250249 (Version 2)
Quarter: 2014Q3

REPORT INFORMATION
  Report Type: Spontaneous
  Country: US (occurrence: None)
  Receive Date: 20140618
  Receipt Date: 20140820
  Transmission Date: 20150326
  Serious: Yes (Other)
  Sender: FDA-Public Use
  Company Number: FK201402359

PATIENT
  Age: 31 Year
  Sex: Female

DRUGS (22)
  1. PROTONIX [Concomitant]
     Active Substance: PANTOPRAZOLE SODIUM
  2. PHENERGAN [Concomitant]
     Active Substance: PROMETHAZINE HYDROCHLORIDE
  3. TACROLIMUS. [Concomitant]
     Active Substance: TACROLIMUS
  4. INOTUZUMAB OZOGAMICIN [Suspect]
     Active Substance: INOTUZUMAB OZOGAMICIN
     Indication: ACUTE LYMPHOCYTIC LEUKAEMIA
     Dosage: 1.8MG/M2, C1 ONLY ONCE ON DAY 3 OF ALL CYCLES INTRAVENOUS
     Route: 042
     Dates: start: 20140104, end: 20140104
  5. OXYCODONE [Concomitant]
     Active Substance: OXYCODONE
  6. VINCRISTINE [Suspect]
     Active Substance: VINCRISTINE
     Indication: ACUTE LYMPHOCYTIC LEUKAEMIA
     Dosage: 2MG, CYCLIC, INTRAVENOUS
     Route: 042
     Dates: start: 20140102, end: 20140303
  7. MESNA. [Suspect]
     Active Substance: MESNA
     Indication: ACUTE LYMPHOCYTIC LEUKAEMIA
     Dosage: 690MG, CYCLIC
  8. SUCRALFATE. [Concomitant]
     Active Substance: SUCRALFATE
  9. PREDNISONE. [Concomitant]
     Active Substance: PREDNISONE
  10. AMBIEN [Concomitant]
     Active Substance: ZOLPIDEM TARTRATE
  11. MEPRON (METHYLPREDNISOLONE) [Concomitant]
  12. LEVAQUIN [Concomitant]
     Active Substance: LEVOFLOXACIN
  13. TACROLIMUS. [Concomitant]
     Active Substance: TACROLIMUS
  14. MULTIVITAMIN (VIGRAN) [Concomitant]
  15. DEXAMETHASONE SODIUM PHOSPHATE [Suspect]
     Active Substance: DEXAMETHASONE SODIUM PHOSPHATE
     Indication: ACUTE LYMPHOCYTIC LEUKAEMIA
     Dosage: 20MG, CYCLIC, INTRAVENOUS
     Route: 042
     Dates: start: 20140102, end: 20140303
  16. CYCLOPHOSPHAMIDE. [Suspect]
     Active Substance: CYCLOPHOSPHAMIDE
     Indication: ACUTE LYMPHOCYTIC LEUKAEMIA
     Dosage: CYCLIC
     Route: 042
     Dates: start: 20140102, end: 20140303
  17. CASPOFUNGIN [Concomitant]
     Active Substance: CASPOFUNGIN
  18. MAGNESIUM [Concomitant]
     Active Substance: MAGNESIUM
  19. URSODIOL (URSODEOXYCHOLIC ACID) [Concomitant]
  20. ZOFRAN (ONDANSETRON) [Concomitant]
  21. VALTREX [Concomitant]
     Active Substance: VALACYCLOVIR HYDROCHLORIDE
  22. MIRALAX (MACROGOL) [Concomitant]

REACTIONS (1)
  - Venoocclusive liver disease [None]

NARRATIVE: CASE EVENT DATE: 20140410
